FAERS Safety Report 6348153-2 (Version None)
Quarter: 2009Q3

REPORT INFORMATION
  Report Type: 
  Country: None (occurrence: None)
  Receive Date: 20090908
  Receipt Date: 20090820
  Transmission Date: 20100115
  Serious: Yes (Hospitalization)
  Sender: FDA-Public Use
  Company Number: 1000008643

PATIENT
  Age: 74 Year
  Sex: Male

DRUGS (9)
  1. CITALOPRAM HYDROBROMIDE [Suspect]
     Dosage: 20 MG (20 MG)
  2. FLUOXETINE [Suspect]
  3. REBOXETINE(TABLETS) [Suspect]
     Dosage: 4 MG (4 MG)
  4. CIPROFLOXACIN [Suspect]
     Indication: URINARY RETENTION
     Dosage: 1000 MG (500 MG,2 IN 1 D)
  5. ACETYLSALICYLIC ACID SRT [Concomitant]
  6. SULPRIDE (TABLETS) [Concomitant]
  7. ENALAPRIL MALEATE [Concomitant]
  8. DIAZEPAM [Concomitant]
  9. OXYBUTYNIN (TABLETS) [Concomitant]

REACTIONS (3)
  - DRUG INTERACTION [None]
  - SEROTONIN SYNDROME [None]
  - URINARY RETENTION [None]
